FAERS Safety Report 8709132 (Version 2)
Quarter: 2012Q4

REPORT INFORMATION
  Report Type: 
  Country: IT (occurrence: IT)
  Receive Date: 20120806
  Receipt Date: 20120910
  Transmission Date: 20130627
  Serious: Yes (Life-Threatening)
  Sender: FDA-Public Use
  Company Number: IT-ASTRAZENECA-2012SE54453

PATIENT
  Age: 27353 Day
  Sex: Male

DRUGS (6)
  1. SEROQUEL [Suspect]
     Indication: DEPRESSION
     Route: 048
  2. SEROQUEL [Suspect]
     Indication: DEPRESSION
     Dosage: GENERIC, 3000 mg Once/Single administration
     Route: 048
     Dates: start: 20120331, end: 20120331
  3. EUTIROX [Concomitant]
     Route: 048
  4. DEURSIL [Concomitant]
     Route: 048
  5. ZOLOFT [Concomitant]
     Route: 048
  6. DEBRUM [Concomitant]
     Dosage: 150MG+4MG
     Route: 048

REACTIONS (3)
  - Coma [Recovering/Resolving]
  - Suicidal ideation [Recovering/Resolving]
  - Sopor [Recovering/Resolving]
